FAERS Safety Report 4879129-X (Version None)
Quarter: 2006Q1

REPORT INFORMATION
  Report Type: 
  Country: None (occurrence: None)
  Receive Date: 20060112
  Receipt Date: 20051221
  Transmission Date: 20060701
  Serious: Yes (Hospitalization)
  Sender: FDA-Public Use
  Company Number: PHHO2005US19970

PATIENT
  Age: 21 Year
  Sex: Female

DRUGS (4)
  1. EXJADE [Suspect]
     Indication: HAEMOSIDEROSIS
     Dosage: 1500 MG DAILY
     Route: 048
     Dates: start: 20050802
  2. OXYCODONE [Concomitant]
  3. MOTRIN [Concomitant]
  4. FOLIC ACID [Concomitant]
     Dosage: 1 MG, QD

REACTIONS (2)
  - ABORTION SPONTANEOUS [None]
  - DRUG EXPOSURE DURING PREGNANCY [None]
